FAERS Safety Report 6979089-1 (Version None)
Quarter: 2010Q3

REPORT INFORMATION
  Report Type: 
  Country: None (occurrence: None)
  Receive Date: 20100913
  Receipt Date: 20100831
  Transmission Date: 20110219
  Serious: Yes (Other)
  Sender: FDA-Public Use
  Company Number: PHHY2010BR58308

PATIENT
  Sex: Female
  Weight: 71.5 kg

DRUGS (7)
  1. DIOVAN [Suspect]
     Indication: HYPERTENSION
     Dosage: 1 TABLET DAILY
     Route: 048
  2. ATENOLOL AND CHLORTHALIDONE [Concomitant]
     Indication: HYPERTENSION
     Dosage: 1 TABLET PER DAY
     Route: 048
     Dates: start: 19980101
  3. ATENOLOL [Concomitant]
     Indication: HYPERTENSION
     Dosage: 1/2 TABLET IN AFTERNOON
     Route: 048
  4. FRONTAL [Concomitant]
     Indication: MUSCLE RELAXANT THERAPY
     Dosage: 1/2 TABLET TWIDE A DAY
     Route: 048
     Dates: start: 19980101
  5. SIMVASTATIN [Concomitant]
     Dosage: 1 TABLET A DAY
     Route: 048
     Dates: start: 20000101
  6. EUTHYROX [Concomitant]
     Indication: THYROID DISORDER
     Dosage: 1 TABLET A DAY
     Route: 048
     Dates: start: 20000101
  7. METFORMIN [Concomitant]
     Indication: DIABETES MELLITUS
     Dosage: 1 TABLET A DAY
     Route: 048
     Dates: start: 20080101

REACTIONS (5)
  - BLOOD PRESSURE FLUCTUATION [None]
  - BLOOD PRESSURE INADEQUATELY CONTROLLED [None]
  - CATARACT OPERATION [None]
  - DIABETES MELLITUS [None]
  - HYPERTENSION [None]
